FAERS Safety Report 9379624 (Version 2)
Quarter: 2013Q3

REPORT INFORMATION
  Report Type: Spontaneous
  Country: FR (occurrence: FR)
  Receive Date: 20130702
  Receipt Date: 20130719
  Transmission Date: 20140515
  Serious: Yes (Life-Threatening, Hospitalization, Other)
  Sender: FDA-Public Use
  Company Number: FR-SANOFI-AVENTIS-2013SA065686

PATIENT
  Age: 81 Year
  Sex: Female
  Weight: 80 kg

DRUGS (8)
  1. PLAVIX [Suspect]
     Indication: PRODUCT USED FOR UNKNOWN INDICATION
     Route: 065
     Dates: start: 201304, end: 201304
  2. PLAVIX [Suspect]
     Indication: PRODUCT USED FOR UNKNOWN INDICATION
     Route: 065
     Dates: start: 201304
  3. LOVENOX [Suspect]
     Indication: VEIN DISORDER
     Route: 065
     Dates: start: 201304, end: 20130425
  4. LOVENOX [Suspect]
     Indication: VEIN DISORDER
     Route: 058
     Dates: start: 20130425, end: 20130426
  5. LOVENOX [Suspect]
     Indication: VEIN DISORDER
     Route: 065
     Dates: start: 20130426
  6. ANGIOMAX [Suspect]
     Indication: CORONARY ANGIOPLASTY
     Dosage: 0.75 MG/KG (12 ML) BOLUS, INTRAVENOUS
     Route: 040
     Dates: start: 20130425, end: 20130425
  7. ANGIOMAX [Suspect]
     Indication: CORONARY ANGIOPLASTY
     Dosage: 1.75 MG/KG/HR (28 ML), INFUSION INTRAVENOUS
     Route: 042
     Dates: start: 20130425, end: 20130425
  8. ASPIRIN [Suspect]
     Indication: PRODUCT USED FOR UNKNOWN INDICATION
     Route: 065
     Dates: start: 201304, end: 201304

REACTIONS (6)
  - Blood pressure decreased [Recovered/Resolved]
  - Tachycardia [Recovered/Resolved]
  - Dyspnoea [Recovered/Resolved]
  - Shock haemorrhagic [Recovered/Resolved]
  - Vascular pseudoaneurysm [Recovered/Resolved]
  - Catheter site haematoma [Recovered/Resolved]
